FAERS Safety Report 8513961-6 (Version None)
Quarter: 2012Q3

REPORT INFORMATION
  Report Type: 
  Country: None (occurrence: None)
  Receive Date: 20120717
  Receipt Date: 20120711
  Transmission Date: 20120928
  Serious: Yes (Hospitalization)
  Sender: FDA-Public Use
  Company Number: BR-ASTRAZENECA-2012SE47770

PATIENT
  Age: 2 Year
  Sex: Male

DRUGS (5)
  1. PREDSIN [Concomitant]
     Indication: ASTHMA
  2. BUDESONIDE [Suspect]
     Indication: ASTHMA
     Dosage: 80/4.5MCG UNKNOWN
     Route: 055
     Dates: start: 20050101, end: 20091223
  3. BUDESONIDE [Suspect]
     Dosage: 160/4.5MCG PRN
     Route: 055
     Dates: start: 20050101
  4. BUDECORT [Concomitant]
     Indication: NASAL CONGESTION
     Route: 045
  5. BUSONID [Concomitant]
     Indication: ASTHMA

REACTIONS (2)
  - ASTHMA [None]
  - OFF LABEL USE [None]
